FAERS Safety Report 11213743 (Version 3)
Quarter: 2015Q4

REPORT INFORMATION
  Report Type: Spontaneous
  Country: JP (occurrence: JP)
  Receive Date: 20150623
  Receipt Date: 20151215
  Transmission Date: 20160304
  Serious: Yes (Death, Life-Threatening, Other)
  Sender: FDA-Public Use
  Company Number: JP-BAXTER-2015BAX033945

PATIENT
  Age: 59 Year
  Sex: Female

DRUGS (3)
  1. DACARBAZINE. [Suspect]
     Active Substance: DACARBAZINE
     Indication: PHAEOCHROMOCYTOMA
     Dosage: 24 COURSES
     Route: 042
     Dates: start: 200610, end: 201103
  2. ONCOVIN [Suspect]
     Active Substance: VINCRISTINE SULFATE
     Indication: PHAEOCHROMOCYTOMA
     Dosage: 24 COURSES
     Route: 042
     Dates: start: 200610, end: 201103
  3. ENDOXAN 1G [Suspect]
     Active Substance: CYCLOPHOSPHAMIDE
     Indication: PHAEOCHROMOCYTOMA
     Dosage: 24 COURSES
     Route: 041
     Dates: start: 200610, end: 201103

REACTIONS (8)
  - Paraparesis [Unknown]
  - Metastases to spine [Unknown]
  - Inflammation [Unknown]
  - Infection [Unknown]
  - Phaeochromocytoma malignant [Fatal]
  - Pneumonia [Unknown]
  - Myelodysplastic syndrome [Not Recovered/Not Resolved]
  - Leukaemoid reaction [Unknown]

NARRATIVE: CASE EVENT DATE: 2014
